FAERS Safety Report 6871892-1 (Version None)
Quarter: 2010Q2

REPORT INFORMATION
  Report Type: 
  Country: None (occurrence: None)
  Receive Date: 20100528
  Receipt Date: 20100325
  Transmission Date: 20101027
  Serious: Yes (Other)
  Sender: FDA-Public Use
  Company Number: 2010027085

PATIENT
  Age: 87 Year
  Sex: Female
  Weight: 59 kg

DRUGS (3)
  1. TOVIAZ [Suspect]
     Indication: HYPERTONIC BLADDER
     Dosage: ORAL
     Route: 048
     Dates: start: 20091120
  2. CALCIUM (CALCIUM) [Concomitant]
  3. LEVAQUIN [Concomitant]

REACTIONS (4)
  - BLADDER DISORDER [None]
  - CONSTIPATION [None]
  - DIARRHOEA [None]
  - DRUG INTOLERANCE [None]
